FAERS Safety Report 24779561 (Version 1)
Quarter: 2024Q4

REPORT INFORMATION
  Report Type: Spontaneous
  Country: ES (occurrence: ES)
  Receive Date: 20241226
  Receipt Date: 20241226
  Transmission Date: 20250114
  Serious: Yes (Hospitalization)
  Sender: APELLIS PHARMACEUTICALS
  Company Number: ES-BIOVITRUM-2024-ES-001521

PATIENT

DRUGS (3)
  1. PEGCETACOPLAN [Suspect]
     Active Substance: PEGCETACOPLAN
     Indication: Paroxysmal nocturnal haemoglobinuria
  2. PEGCETACOPLAN [Suspect]
     Active Substance: PEGCETACOPLAN
     Dosage: DAY AFTER THE SURGERY
     Dates: start: 20240216
  3. PEGCETACOPLAN [Suspect]
     Active Substance: PEGCETACOPLAN
     Dosage: RECEIVED AN EXTRA DOSE
     Dates: start: 20240214

REACTIONS (9)
  - Uterine leiomyoma [Recovered/Resolved]
  - Post procedural infection [Recovered/Resolved]
  - Dry mouth [Unknown]
  - Dry throat [Unknown]
  - Nasal dryness [Unknown]
  - Dry eye [Unknown]
  - Extra dose administered [Unknown]
  - Nausea [Unknown]
  - Blood lactate dehydrogenase increased [Unknown]

NARRATIVE: CASE EVENT DATE: 20240219
